FAERS Safety Report 8519131-X (Version None)
Quarter: 2012Q3

REPORT INFORMATION
  Report Type: 
  Country: None (occurrence: None)
  Receive Date: 20120709
  Receipt Date: 20120622
  Transmission Date: 20120928
  Serious: Yes (Other)
  Sender: FDA-Public Use
  Company Number: JPI-P-022262

PATIENT
  Age: 29 Year
  Sex: Male
  Weight: 86.1834 kg

DRUGS (9)
  1. TEMAZEPAM [Suspect]
     Indication: SLEEP DISORDER
     Dosage: 15 MG, 1 TO 2 CAPSULES NIGHTLY PRN, ORAL; 30 MG (30 MG, 1 IN 1 D), ORAL
     Route: 048
     Dates: start: 20120101
  2. TEMAZEPAM [Suspect]
     Indication: SLEEP DISORDER
     Dosage: 15 MG, 1 TO 2 CAPSULES NIGHTLY PRN, ORAL; 30 MG (30 MG, 1 IN 1 D), ORAL
     Route: 048
     Dates: start: 20120401
  3. LISINOPRIL [Concomitant]
  4. DEXTROAMPHETAMINE AND AMPHETAMINE [Concomitant]
  5. XYREM [Suspect]
     Indication: NARCOLEPSY
     Dosage: SEE IMAGE
     Route: 048
     Dates: start: 20120125
  6. XYREM [Suspect]
     Indication: NARCOLEPSY
     Dosage: SEE IMAGE
     Route: 048
     Dates: start: 20120322
  7. XYREM [Suspect]
     Indication: NARCOLEPSY
     Dosage: SEE IMAGE
     Route: 048
     Dates: start: 20120101
  8. XYREM [Suspect]
     Indication: NARCOLEPSY
     Dosage: SEE IMAGE
     Route: 048
     Dates: start: 20120101, end: 20120620
  9. OXYCODONE HCL AND ACETAMINOPHEN [Concomitant]

REACTIONS (9)
  - COLD SWEAT [None]
  - DRUG INTERACTION [None]
  - ABDOMINAL PAIN [None]
  - DEHYDRATION [None]
  - INSOMNIA [None]
  - PALLOR [None]
  - INCOHERENT [None]
  - HEADACHE [None]
  - NAUSEA [None]
